FAERS Safety Report 15057484 (Version 3)
Quarter: 2019Q1

REPORT INFORMATION
  Report Type: Spontaneous
  Country: FR (occurrence: FR)
  Receive Date: 20180625
  Receipt Date: 20190302
  Transmission Date: 20190417
  Serious: Yes (Hospitalization)
  Sender: FDA-Public Use
  Company Number: FR-SUN PHARMACEUTICAL INDUSTRIES LTD-2018RR-176504

PATIENT
  Age: 84 Year
  Sex: Female

DRUGS (29)
  1. LANSOPRAZOLE. [Suspect]
     Active Substance: LANSOPRAZOLE
     Indication: GASTROOESOPHAGEAL REFLUX DISEASE
     Dosage: ()
     Route: 048
     Dates: start: 201603, end: 20170101
  2. VOLTARENE (DICLOFENAC DIETHYLAMINE) [Suspect]
     Active Substance: DICLOFENAC DIETHYLAMINE
     Indication: BACK PAIN
     Dosage: ()
     Route: 065
     Dates: start: 201603, end: 20170101
  3. CACIT VITAMINE D3 [Concomitant]
     Active Substance: CALCIUM CARBONATE\CHOLECALCIFEROL
     Indication: VITAMIN D DEFICIENCY
     Dosage: ()
     Route: 048
  4. METFORMINE [Concomitant]
     Active Substance: METFORMIN HYDROCHLORIDE
     Indication: DIABETES MELLITUS
     Dosage: ()
     Route: 048
  5. PERINDOPRIL [Concomitant]
     Active Substance: PERINDOPRIL
     Indication: HYPERTENSION
     Dosage: ()
     Route: 048
  6. IMOVANE [Concomitant]
     Active Substance: ZOPICLONE
     Indication: INSOMNIA
     Dosage: ()
     Route: 065
  7. REPAGLINIDE. [Concomitant]
     Active Substance: REPAGLINIDE
     Indication: DIABETES MELLITUS
     Dosage: ()
     Route: 048
     Dates: start: 201603, end: 20161018
  8. LASILIX [Suspect]
     Active Substance: FUROSEMIDE
     Indication: HYPERTENSION
     Dosage: DU 06/09/2016 AU 20/02/2017 REINTRODUIT EN MARS 2017 ()
     Route: 048
     Dates: start: 20160609, end: 20170220
  9. LASILIX [Suspect]
     Active Substance: FUROSEMIDE
     Dosage: UNK
     Route: 048
     Dates: end: 201703
  10. DOLIPRANE [Concomitant]
     Active Substance: ACETAMINOPHEN
     Indication: PAIN
     Dosage: ()
     Route: 048
     Dates: start: 201603
  11. PANTOPRAZOLE [Concomitant]
     Active Substance: PANTOPRAZOLE
     Indication: GASTROOESOPHAGEAL REFLUX DISEASE
     Dosage: ()
     Route: 048
     Dates: start: 20170101
  12. LYRICA [Concomitant]
     Active Substance: PREGABALIN
     Indication: PAIN
     Dosage: ()
     Route: 048
     Dates: start: 20161018
  13. CELIPROLOL [Concomitant]
     Active Substance: CELIPROLOL
     Indication: HYPERTENSION
     Dosage: ()
     Route: 048
     Dates: start: 201603
  14. TARDYFERON [Concomitant]
     Active Substance: FERROUS SULFATE
     Indication: BLOOD IRON DECREASED
     Dosage: ()
     Route: 065
  15. NOVORAPID [Concomitant]
     Active Substance: INSULIN ASPART
     Indication: DIABETES MELLITUS
     Dosage: ()
     Route: 065
  16. ATORVASTATIN [Suspect]
     Active Substance: ATORVASTATIN
     Indication: DYSLIPIDAEMIA
     Dosage: ()
     Route: 048
     Dates: start: 201603, end: 201610
  17. BURINEX [Suspect]
     Active Substance: BUMETANIDE
     Indication: OEDEMA
     Dosage: DE MARS 2016 A MAI 2016 PUIS DU 20/02/2017 AU 02/03/2017 ()
     Route: 048
  18. COUMADINE [Suspect]
     Active Substance: WARFARIN SODIUM
     Indication: THROMBOSIS PROPHYLAXIS
     Dosage: ()
     Route: 048
     Dates: start: 20170101, end: 20170220
  19. GALVUS 50 MG, COMPRIME [Suspect]
     Active Substance: VILDAGLIPTIN
     Indication: DIABETES MELLITUS
     Dosage: ()
     Route: 048
     Dates: start: 20161018, end: 20170306
  20. ISOPHANE INSULIN [Concomitant]
     Active Substance: INSULIN NOS
     Indication: DIABETES MELLITUS
     Dosage: ()
     Route: 058
     Dates: start: 201603, end: 20170101
  21. ALLOPURINOL. [Suspect]
     Active Substance: ALLOPURINOL
     Indication: GOUT
     Dosage: ()
     Route: 048
     Dates: start: 201603, end: 20170101
  22. BURINEX [Suspect]
     Active Substance: BUMETANIDE
     Dosage: UNK
     Route: 048
     Dates: start: 201603, end: 201605
  23. TOPALGIC (TRAMADOL CHLORHYDRATE) [Suspect]
     Active Substance: TRAMADOL HYDROCHLORIDE
     Indication: PAIN
     Dosage: ()
     Route: 048
     Dates: start: 20170101, end: 201703
  24. TAHOR [Concomitant]
     Active Substance: ATORVASTATIN CALCIUM
     Indication: HYPERCHOLESTEROLAEMIA
     Dosage: ()
     Route: 048
     Dates: start: 20170101
  25. AZITHROMYCINE ANHYDRE [Concomitant]
     Active Substance: AZITHROMYCIN ANHYDROUS
     Indication: PRODUCT USED FOR UNKNOWN INDICATION
     Dosage: ()
     Route: 048
     Dates: start: 201603, end: 201603
  26. TOUJEO 300 UNITE/ML, SOLUTION INJECTABLE EN STYLO PREREMPLI [Concomitant]
     Indication: DIABETES MELLITUS
     Dosage: ()
     Route: 058
     Dates: start: 20161018, end: 201703
  27. KARDEGIC [Suspect]
     Active Substance: ASPIRIN DL-LYSINE
     Indication: THROMBOSIS PROPHYLAXIS
     Dosage: ()
     Route: 048
     Dates: start: 201603, end: 201611
  28. PREVISCAN 20 MG, COMPRIME SECABLE [Concomitant]
     Active Substance: FLUINDIONE
     Indication: THROMBOSIS PROPHYLAXIS
     Dosage: ()
     Route: 065
  29. LERCANIDIPINE (CHLORHYDRATE DE) [Concomitant]
     Active Substance: LERCANIDIPINE HYDROCHLORIDE
     Indication: HYPERTENSION
     Dosage: ()
     Route: 048
     Dates: start: 201603

REACTIONS (2)
  - Pemphigoid [Recovered/Resolved]
  - Rash [Recovered/Resolved]

NARRATIVE: CASE EVENT DATE: 201611
